FAERS Safety Report 8422250-X (Version None)
Quarter: 2012Q2

REPORT INFORMATION
  Report Type: 
  Country: None (occurrence: None)
  Receive Date: 20120605
  Receipt Date: 20120525
  Transmission Date: 20120825
  Serious: Yes (Hospitalization)
  Sender: FDA-Public Use
  Company Number: GER/UKI/12/0024474

PATIENT
  Age: 67 Year
  Sex: Female

DRUGS (12)
  1. NICORANDIL (NICORANDIL) [Concomitant]
  2. LEVOTHYROXINE SODIUM [Concomitant]
  3. SIMVASTATIN [Concomitant]
  4. DILZEM XL (DILTIAZEM HYDROCHLORIDE) [Concomitant]
  5. LEVOFLOXACIN [Suspect]
     Indication: LOWER RESPIRATORY TRACT INFECTION
     Dosage: 500 MG, ORAL
     Route: 048
     Dates: start: 20120309, end: 20120316
  6. CLOPIDEGREL [Concomitant]
  7. PREDNISOLONE [Suspect]
     Indication: LOWER RESPIRATORY TRACT INFECTION
     Dosage: ORAL
     Route: 048
     Dates: start: 20120309, end: 20120316
  8. MOVICOL (POLYETHYL, GLYC. W/POTAS. CHLOR./SOD. BICARB.) [Concomitant]
  9. TROPIUM (CHLORDIAZEPOXIDE HYDROCHLORIDE) [Concomitant]
  10. VENLAFAXINE HCL [Concomitant]
  11. ACETAMINOPHEN W/ CODEINE [Concomitant]
  12. TERBUTALINE SULFATE [Concomitant]

REACTIONS (3)
  - FALL [None]
  - TENDON RUPTURE [None]
  - TENDON PAIN [None]
